FAERS Safety Report 6255308-4 (Version None)
Quarter: 2009Q3

REPORT INFORMATION
  Report Type: 
  Country: None (occurrence: None)
  Receive Date: 20090702
  Receipt Date: 20090618
  Transmission Date: 20100115
  Serious: Yes (Hospitalization)
  Sender: FDA-Public Use
  Company Number: ES-JNJFOC-20090609116

PATIENT
  Age: 79 Year
  Sex: Male

DRUGS (6)
  1. ZALDIAR [Suspect]
     Indication: BACK PAIN
     Route: 048
  2. CLORAZEPIC ACID [Interacting]
     Indication: ANXIETY
     Route: 048
  3. IBUPROFEN TABLETS [Interacting]
     Indication: BACK PAIN
     Route: 048
  4. ZOLPIDEM [Interacting]
     Indication: INSOMNIA
     Route: 048
  5. WARFARIN [Concomitant]
  6. AMIODARONE HCL [Concomitant]

REACTIONS (2)
  - DRUG INTERACTION [None]
  - SOMNOLENCE [None]
